FAERS Safety Report 19714753 (Version 1)
Quarter: 2021Q3

REPORT INFORMATION
  Report Type: Spontaneous
  Country: GB (occurrence: GB)
  Receive Date: 20210818
  Receipt Date: 20210818
  Transmission Date: 20211014
  Serious: Yes (Death, Other)
  Sender: FDA-Public Use
  Company Number: GB-SUN PHARMACEUTICAL INDUSTRIES LTD-2021RR-308215

PATIENT
  Age: 17 Year
  Sex: Male

DRUGS (3)
  1. PARACETAMOL [Suspect]
     Active Substance: ACETAMINOPHEN
     Indication: PRODUCT USED FOR UNKNOWN INDICATION
     Dosage: 2 TABLETS
     Route: 065
  2. CHLORPHENAMINE [Suspect]
     Active Substance: CHLORPHENIRAMINE MALEATE
     Indication: PRODUCT USED FOR UNKNOWN INDICATION
     Dosage: 21 TABLETS
     Route: 065
  3. ISOTRETINOIN. [Suspect]
     Active Substance: ISOTRETINOIN
     Indication: ACNE
     Dosage: 80 MILLIGRAM, DAILY
     Route: 048
     Dates: start: 201005

REACTIONS (17)
  - Pain in extremity [Fatal]
  - Psychiatric symptom [Fatal]
  - Erythema [Fatal]
  - Personality change [Fatal]
  - Suicide attempt [Fatal]
  - Localised infection [Fatal]
  - Suicidal ideation [Fatal]
  - Aggression [Fatal]
  - Ingrowing nail [Fatal]
  - Completed suicide [Fatal]
  - Gastric infection [Fatal]
  - Overdose [Fatal]
  - Dry skin [Fatal]
  - Lip dry [Fatal]
  - Scar [Fatal]
  - Oropharyngeal pain [Fatal]
  - Depression [Fatal]

NARRATIVE: CASE EVENT DATE: 201009
